FAERS Safety Report 4281648-4 (Version None)
Quarter: 2004Q1

REPORT INFORMATION
  Report Type: 
  Country: None (occurrence: None)
  Receive Date: 20040106
  Receipt Date: 20030425
  Transmission Date: 20041129
  Serious: Yes (Hospitalization)
  Sender: FDA-Public Use
  Company Number: DSA_22660_2003

PATIENT
  Age: 47 Year
  Sex: Female
  Weight: 105.2345 kg

DRUGS (7)
  1. CARDIZEM [Suspect]
     Indication: CARDIAC DISORDER
     Dosage: 60 MG QID PO
     Route: 048
     Dates: start: 19910101, end: 19940101
  2. CARDIZEM CD [Suspect]
     Indication: CARDIAC DISORDER
     Dosage: 240 MG PER24HR PO
     Route: 048
     Dates: start: 19940101
  3. ASPIRIN [Concomitant]
  4. IMDUR [Concomitant]
  5. SORBITRATE [Concomitant]
  6. VALTREX [Concomitant]
  7. ALTACE [Concomitant]

REACTIONS (2)
  - DIABETES MELLITUS INADEQUATE CONTROL [None]
  - MYOCARDIAL INFARCTION [None]
